FAERS Safety Report 8168117-6 (Version None)
Quarter: 2012Q1

REPORT INFORMATION
  Report Type: 
  Country: None (occurrence: None)
  Receive Date: 20120227
  Receipt Date: 20120220
  Transmission Date: 20120608
  Serious: Yes (Other)
  Sender: FDA-Public Use
  Company Number: RU-ROCHE-1026455

PATIENT
  Sex: Female

DRUGS (1)
  1. LUCENTIS [Suspect]
     Indication: AGE-RELATED MACULAR DEGENERATION
     Dosage: 6 INTRAVITREAL INJECTIONS, LAST DOSE: 5 DEC 2011
     Route: 050
     Dates: end: 20111205

REACTIONS (2)
  - BLINDNESS UNILATERAL [None]
  - UVEITIS [None]
